FAERS Safety Report 15689601 (Version 1)
Quarter: 2018Q4

REPORT INFORMATION
  Report Type: Spontaneous
  Country: US (occurrence: US)
  Receive Date: 20181205
  Receipt Date: 20181205
  Transmission Date: 20190205
  Serious: Yes (Other)
  Sender: FDA-Public Use
  Company Number: US-SUNOVION-2018SUN004691

PATIENT
  Sex: Female

DRUGS (2)
  1. LATUDA [Suspect]
     Active Substance: LURASIDONE HYDROCHLORIDE
     Indication: BIPOLAR DISORDER
     Dosage: 20 MG
     Route: 048
  2. LATUDA [Suspect]
     Active Substance: LURASIDONE HYDROCHLORIDE
     Dosage: 10 MG
     Route: 048

REACTIONS (18)
  - Blood triglycerides increased [Unknown]
  - Bruxism [Unknown]
  - Restless legs syndrome [Unknown]
  - Palpitations [Unknown]
  - Fatigue [Unknown]
  - Lip disorder [Unknown]
  - Temperature intolerance [Unknown]
  - Glucose tolerance impaired [Unknown]
  - Night sweats [Unknown]
  - Insomnia [Unknown]
  - Muscle twitching [Unknown]
  - Akathisia [Unknown]
  - Exercise tolerance decreased [Unknown]
  - Weight increased [Unknown]
  - Blood cholesterol increased [Unknown]
  - Headache [Unknown]
  - Hot flush [Unknown]
  - Cough [Unknown]
